FAERS Safety Report 6331145-7 (Version None)
Quarter: 2009Q3

REPORT INFORMATION
  Report Type: 
  Country: None (occurrence: None)
  Receive Date: 20090827
  Receipt Date: 20090817
  Transmission Date: 20100115
  Serious: Yes (Other)
  Sender: FDA-Public Use
  Company Number: BE-PFIZER INC-2009255808

PATIENT
  Age: 44 Year

DRUGS (5)
  1. XANAX [Suspect]
  2. NARDELZINE [Suspect]
  3. POLYURETHANE [Suspect]
  4. STILNOCT [Suspect]
  5. PROTHIADEN [Suspect]

REACTIONS (1)
  - SUICIDE ATTEMPT [None]
